FAERS Safety Report 14814528 (Version 1)
Quarter: 2018Q2

REPORT INFORMATION
  Report Type: Spontaneous
  Country: DE (occurrence: DE)
  Receive Date: 20180426
  Receipt Date: 20180426
  Transmission Date: 20180711
  Serious: Yes (Hospitalization)
  Sender: FDA-Public Use
  Company Number: DE-ROCHE-2107321

PATIENT
  Age: 59 Year
  Sex: Male
  Weight: 86 kg

DRUGS (8)
  1. REBETOL [Suspect]
     Active Substance: RIBAVIRIN
     Dosage: A FOUR-WEEK-LASTING MONO-THERAPY
     Route: 048
     Dates: start: 20100301
  2. PEGASYS [Suspect]
     Active Substance: PEGINTERFERON ALFA-2A
     Route: 065
     Dates: start: 200902
  3. PEGASYS [Suspect]
     Active Substance: PEGINTERFERON ALFA-2A
     Route: 065
     Dates: start: 20100621
  4. PEGASYS [Suspect]
     Active Substance: PEGINTERFERON ALFA-2A
     Route: 065
     Dates: start: 20101119
  5. REBETOL [Suspect]
     Active Substance: RIBAVIRIN
     Indication: HEPATITIS C
     Dosage: (600 MG-600 MG-200 MG), 4-WEEK-LASTING MONO-THERAPY
     Route: 048
     Dates: start: 20100501, end: 20110413
  6. REBETOL [Suspect]
     Active Substance: RIBAVIRIN
     Indication: HEPATITIS C
     Dosage: A FOUR-WEEK-LASTING MONO-THERAPY
     Route: 048
     Dates: start: 200901
  7. PEGASYS [Suspect]
     Active Substance: PEGINTERFERON ALFA-2A
     Indication: HEPATITIS C
     Route: 065
     Dates: start: 20100621
  8. PEGASYS [Suspect]
     Active Substance: PEGINTERFERON ALFA-2A
     Dosage: ON 11/FEB/2011, SHE RECEIVED MOST RECENT DOSE OF PEG-INTERFERON ALFA 2A
     Route: 065
     Dates: start: 20110128

REACTIONS (9)
  - Anaemia [Unknown]
  - Inappropriate schedule of drug administration [Unknown]
  - Incorrect dose administered [Unknown]
  - Pancytopenia [Unknown]
  - Acute hepatic failure [Unknown]
  - Bronchial carcinoma [Unknown]
  - Product use issue [Unknown]
  - Lung neoplasm malignant [Unknown]
  - Wrong technique in product usage process [Unknown]

NARRATIVE: CASE EVENT DATE: 200901
